FAERS Safety Report 22181612 (Version 1)
Quarter: 2023Q2

REPORT INFORMATION
  Report Type: Spontaneous
  Country: AU (occurrence: None)
  Receive Date: 20230406
  Receipt Date: 20230406
  Transmission Date: 20230721
  Serious: Yes (Other)
  Sender: FDA-Public Use
  Company Number: 2023A074264

PATIENT
  Age: 56 Year
  Sex: Male

DRUGS (16)
  1. DAPAGLIFLOZIN [Suspect]
     Active Substance: DAPAGLIFLOZIN
     Route: 048
  2. FENTANYL [Suspect]
     Active Substance: FENTANYL
  3. ATORVASTATIN [Suspect]
     Active Substance: ATORVASTATIN
  4. BISOPROLOL [Suspect]
     Active Substance: BISOPROLOL
  5. ENTRESTO [Suspect]
     Active Substance: SACUBITRIL\VALSARTAN
  6. FUROSEMIDE [Suspect]
     Active Substance: FUROSEMIDE
  7. INSULIN NOS [Suspect]
     Active Substance: INSULIN NOS
  8. OZEMPIC [Suspect]
     Active Substance: SEMAGLUTIDE
  9. ASPIRIN [Suspect]
     Active Substance: ASPIRIN
  10. DIAZEPAM [Suspect]
     Active Substance: DIAZEPAM
  11. DIGOXIN [Suspect]
     Active Substance: DIGOXIN
  12. EPLERENONE [Suspect]
     Active Substance: EPLERENONE
  13. FLUOXETINE HYDROCHLORIDE [Suspect]
     Active Substance: FLUOXETINE HYDROCHLORIDE
  14. OXYCODONE [Suspect]
     Active Substance: OXYCODONE
  15. ZOPICLONE [Suspect]
     Active Substance: ZOPICLONE
  16. WARFARIN [Suspect]
     Active Substance: WARFARIN

REACTIONS (2)
  - Myocardial infarction [Unknown]
  - Disturbance in attention [Unknown]
